FAERS Safety Report 23277405 (Version 1)
Quarter: 2023Q4

REPORT INFORMATION
  Report Type: Spontaneous
  Country: US (occurrence: US)
  Receive Date: 20231208
  Receipt Date: 20231208
  Transmission Date: 20240109
  Serious: Yes (Other)
  Sender: FDA-Public Use
  Company Number: US-GLENMARK PHARMACEUTICALS-2023GMK087020

PATIENT

DRUGS (2)
  1. CLOBETASOL PROPIONATE [Suspect]
     Active Substance: CLOBETASOL PROPIONATE
     Indication: Psoriasis
     Dosage: UNK, BID; OVER ONE YEAR
     Route: 061
  2. METHOTREXATE [Suspect]
     Active Substance: METHOTREXATE
     Indication: Psoriasis
     Dosage: UNK
     Route: 065

REACTIONS (8)
  - Hepatic cirrhosis [Unknown]
  - Varices oesophageal [Unknown]
  - Product use issue [Unknown]
  - Abdominal distension [Unknown]
  - Constipation [Unknown]
  - Renal disorder [Unknown]
  - Application site pain [Unknown]
  - Application site dryness [Unknown]
